FAERS Safety Report 6370785-6 (Version None)
Quarter: 2009Q3

REPORT INFORMATION
  Report Type: 
  Country: None (occurrence: None)
  Receive Date: 20090923
  Receipt Date: 20070518
  Transmission Date: 20100115
  Serious: Yes (Hospitalization)
  Sender: FDA-Public Use
  Company Number: US-ASTRAZENECA-2006UW23782

PATIENT
  Age: 17646 Day
  Sex: Female
  Weight: 81.6 kg

DRUGS (16)
  1. SEROQUEL [Suspect]
     Indication: DEPRESSION
     Dosage: 100 MG - 200 MG
     Route: 048
     Dates: start: 20020221
  2. SEROQUEL [Suspect]
     Indication: HALLUCINATION, AUDITORY
     Dosage: 100 MG - 200 MG
     Route: 048
     Dates: start: 20020221
  3. SEROQUEL [Suspect]
     Route: 048
     Dates: start: 20060111, end: 20060202
  4. SEROQUEL [Suspect]
     Route: 048
     Dates: start: 20060111, end: 20060202
  5. GEODON [Concomitant]
     Dates: start: 20020123
  6. RISPERDAL [Concomitant]
     Dates: start: 20020916
  7. CITALOPRAM [Concomitant]
  8. NIFEDIPINE [Concomitant]
     Dates: start: 20020221
  9. CELEBREX [Concomitant]
     Dates: start: 20020221
  10. ASPIRIN [Concomitant]
     Dates: start: 20020221
  11. COMBIVENT [Concomitant]
     Dates: start: 20030307
  12. VICODIN [Concomitant]
     Dates: start: 20020501
  13. ATENOLOL [Concomitant]
     Dates: start: 20020501
  14. SALSALATE [Concomitant]
     Dates: start: 20020501
  15. NEXIUM [Concomitant]
     Dates: start: 20030307
  16. COLACE [Concomitant]

REACTIONS (3)
  - DIABETES MELLITUS [None]
  - DIABETIC KETOACIDOSIS [None]
  - TYPE 2 DIABETES MELLITUS [None]
